FAERS Safety Report 5702755-2 (Version None)
Quarter: 2008Q2

REPORT INFORMATION
  Report Type: 
  Country: None (occurrence: None)
  Receive Date: 20080411
  Receipt Date: 20080331
  Transmission Date: 20081010
  Serious: Yes (Death)
  Sender: FDA-Public Use
  Company Number: B0515149A

PATIENT
  Age: 66 Year
  Sex: Female

DRUGS (7)
  1. AUGMENTIN '125' [Suspect]
     Indication: INFECTION PROPHYLAXIS
     Dosage: 1G THREE TIMES PER DAY
     Route: 048
     Dates: start: 20070518, end: 20070519
  2. VANCOMYCIN HCL [Suspect]
     Dosage: 1G TWICE PER DAY
     Route: 042
     Dates: start: 20070522, end: 20070522
  3. VALACYCLOVIR [Concomitant]
     Indication: DRUG USE FOR UNKNOWN INDICATION
     Dosage: 500MG TWICE PER DAY
     Route: 048
     Dates: start: 20070518
  4. CIFLOX [Concomitant]
     Indication: DRUG USE FOR UNKNOWN INDICATION
     Dosage: 500MG TWICE PER DAY
     Route: 048
     Dates: start: 20070518, end: 20070520
  5. TRIFLUCAN [Concomitant]
     Indication: DRUG USE FOR UNKNOWN INDICATION
     Dosage: 100MG PER DAY
     Route: 048
     Dates: start: 20070518
  6. AMIKACIN [Concomitant]
     Indication: DRUG USE FOR UNKNOWN INDICATION
     Dosage: 450MG TWICE PER DAY
     Route: 042
     Dates: start: 20070519
  7. PIPERACILLIN SODIUM AND TAZOBACTAM SODIUM [Concomitant]
     Indication: DRUG USE FOR UNKNOWN INDICATION
     Dosage: 4G TWICE PER DAY
     Route: 042
     Dates: start: 20070519

REACTIONS (5)
  - BURNING SENSATION [None]
  - CHILLS [None]
  - DEATH [None]
  - ERYTHEMA [None]
  - LEUKOPENIA [None]
